FAERS Safety Report 5408002-3 (Version None)
Quarter: 2007Q3

REPORT INFORMATION
  Report Type: 
  Country: None (occurrence: None)
  Receive Date: 20070718
  Receipt Date: 20070704
  Transmission Date: 20080115
  Serious: Yes (Hospitalization, Other)
  Sender: FDA-Public Use
  Company Number: THYM-11491

PATIENT
  Age: 56 Year
  Sex: Male
  Weight: 88 kg

DRUGS (15)
  1. THYMOGLOBULIN [Suspect]
     Indication: LIVER TRANSPLANT
     Dosage: 132 MG QOD IV
     Route: 042
     Dates: start: 20061017, end: 20061019
  2. PROGRAF. MFR: FUJISAWA PHARM. [Concomitant]
  3. CELLCEPT. MFR: ROCHE [Concomitant]
  4. TRIFLUCAN. MFR: PFIZER LABORATORIES [Concomitant]
  5. UMULIN. MFR: LILLY ELI AND COMPANY [Concomitant]
  6. VANCOMYCIN [Concomitant]
  7. DELURSAN. MFR: HOUDE [Concomitant]
  8. ACUPAN. MFR: CARNEGIE MEDICAL [Concomitant]
  9. NEXIUM. MFR: ASTRAZENECA [Concomitant]
  10. HALDOL. MFR: MCNEIL LABORATORIES, INCORPORATED [Concomitant]
  11. CYMEVAN. MFR: SYNTEX LABORATORIES, INCORPORATED [Concomitant]
  12. FLUDROCORTISONE ACETATE [Concomitant]
  13. HYDROCORTISONE [Concomitant]
  14. CORDARONE. MFR: LABAZ [Concomitant]
  15. ATARAX. MFR: PFIZER LABORATORIES [Concomitant]

REACTIONS (16)
  - ADRENAL INSUFFICIENCY [None]
  - ASCITES [None]
  - CELL DEATH [None]
  - CHOLESTASIS [None]
  - CYTOMEGALOVIRUS INFECTION [None]
  - DIARRHOEA [None]
  - DRUG INTOLERANCE [None]
  - ENCEPHALOPATHY [None]
  - HYPERBILIRUBINAEMIA [None]
  - JAUNDICE [None]
  - MYOCLONUS [None]
  - PNEUMONIA [None]
  - SKIN ULCER [None]
  - STAPHYLOCOCCAL INFECTION [None]
  - WHITE BLOOD CELL COUNT DECREASED [None]
  - WOUND EVISCERATION [None]
